FAERS Safety Report 17647711 (Version 3)
Quarter: 2020Q2

REPORT INFORMATION
  Report Type: Spontaneous
  Country: FR (occurrence: FR)
  Receive Date: 20200408
  Receipt Date: 20200610
  Transmission Date: 20200713
  Serious: Yes (Hospitalization)
  Sender: FDA-Public Use
  Company Number: FR-PFIZER INC-2020140306

PATIENT
  Age: 31 Year
  Sex: Female
  Weight: 76 kg

DRUGS (6)
  1. IBUPROFEN. [Suspect]
     Active Substance: IBUPROFEN
     Indication: COUGH
  2. IBUPROFEN. [Suspect]
     Active Substance: IBUPROFEN
     Indication: DYSPNOEA
  3. PARACETAMOL [Concomitant]
     Active Substance: ACETAMINOPHEN
     Indication: PYREXIA
     Dosage: UNK
     Dates: start: 20200312
  4. IBUPROFEN. [Suspect]
     Active Substance: IBUPROFEN
     Indication: PYREXIA
  5. IBUPROFEN. [Suspect]
     Active Substance: IBUPROFEN
     Indication: FATIGUE
  6. IBUPROFEN. [Suspect]
     Active Substance: IBUPROFEN
     Indication: COVID-19
     Dosage: 200 MG, 3X/DAY
     Route: 048
     Dates: start: 20200312, end: 20200314

REACTIONS (4)
  - COVID-19 [Not Recovered/Not Resolved]
  - Diarrhoea [Unknown]
  - Alanine aminotransferase increased [Unknown]
  - Condition aggravated [Not Recovered/Not Resolved]

NARRATIVE: CASE EVENT DATE: 20200315
